FAERS Safety Report 6845654-5 (Version None)
Quarter: 2010Q3

REPORT INFORMATION
  Report Type: 
  Country: None (occurrence: None)
  Receive Date: 20100715
  Receipt Date: 20071006
  Transmission Date: 20110219
  Serious: No
  Sender: FDA-Public Use
  Company Number: US-PFIZER INC-2007070666

PATIENT
  Sex: Male

DRUGS (5)
  1. CHANTIX [Suspect]
     Indication: SMOKING CESSATION THERAPY
     Dates: start: 20070725
  2. CELEBREX [Concomitant]
  3. ALLEGRA [Concomitant]
  4. VYTORIN [Concomitant]
  5. ROBAXIN [Concomitant]

REACTIONS (1)
  - DRUG INEFFECTIVE [None]
